FAERS Safety Report 25334626 (Version 1)
Quarter: 2025Q2

REPORT INFORMATION
  Report Type: Report from Study
  Country: TW (occurrence: TW)
  Receive Date: 20250520
  Receipt Date: 20250520
  Transmission Date: 20250717
  Serious: Yes (Other)
  Sender: ACCORD
  Company Number: TW-Accord-485193

PATIENT

DRUGS (8)
  1. HYDROXYCHLOROQUINE [Suspect]
     Active Substance: HYDROXYCHLOROQUINE
     Indication: Autoimmune thyroiditis
  2. BELIMUMAB [Suspect]
     Active Substance: BELIMUMAB
     Indication: Autoimmune thyroiditis
  3. DARATUMUMAB [Suspect]
     Active Substance: DARATUMUMAB
     Indication: Autoimmune thyroiditis
  4. LEFLUNOMIDE [Suspect]
     Active Substance: LEFLUNOMIDE
     Indication: Autoimmune thyroiditis
  5. HYDROXYCHLOROQUINE [Suspect]
     Active Substance: HYDROXYCHLOROQUINE
     Indication: Undifferentiated connective tissue disease
  6. LEFLUNOMIDE [Suspect]
     Active Substance: LEFLUNOMIDE
     Indication: Undifferentiated connective tissue disease
  7. BELIMUMAB [Suspect]
     Active Substance: BELIMUMAB
     Indication: Undifferentiated connective tissue disease
  8. DARATUMUMAB [Suspect]
     Active Substance: DARATUMUMAB
     Indication: Undifferentiated connective tissue disease

REACTIONS (1)
  - Bronchopulmonary aspergillosis [Unknown]
